FAERS Safety Report 7134657-1 (Version None)
Quarter: 2010Q4

REPORT INFORMATION
  Report Type: 
  Country: None (occurrence: None)
  Receive Date: 20101203
  Receipt Date: 20101122
  Transmission Date: 20110411
  Serious: Yes (Other)
  Sender: FDA-Public Use
  Company Number: BR-ELI_LILLY_AND_COMPANY-BR201010003307

PATIENT
  Sex: Male

DRUGS (2)
  1. ZYPREXA [Suspect]
     Dosage: UNK, UNKNOWN
     Route: 065
     Dates: start: 20050101
  2. LITHIUM CARBONATE [Concomitant]
     Dosage: UNK, UNKNOWN
     Route: 065

REACTIONS (3)
  - HALLUCINATION, AUDITORY [None]
  - PSYCHOTIC DISORDER [None]
  - WITHDRAWAL SYNDROME [None]
